FAERS Safety Report 12528708 (Version 1)
Quarter: 2016Q3

REPORT INFORMATION
  Report Type: Spontaneous
  Country: US (occurrence: US)
  Receive Date: 20160705
  Receipt Date: 20160705
  Transmission Date: 20161109
  Serious: No
  Sender: FDA-Public Use
  Company Number: US-MISSION PHARMACAL COMPANY-1054681

PATIENT
  Age: 25 Year
  Sex: Female

DRUGS (1)
  1. THIOLA [Suspect]
     Active Substance: TIOPRONIN
     Indication: METABOLIC DISORDER
     Route: 065
     Dates: start: 20160330

REACTIONS (2)
  - Nephrolithiasis [Unknown]
  - Blood urine present [Unknown]
